FAERS Safety Report 17137359 (Version 1)
Quarter: 2019Q4

REPORT INFORMATION
  Report Type: Spontaneous
  Country: US (occurrence: US)
  Receive Date: 20191210
  Receipt Date: 20191210
  Transmission Date: 20200122
  Serious: No
  Sender: FDA-Public Use
  Company Number: US-VIFOR (INTERNATIONAL) INC.-VIT-2019-13495

PATIENT
  Age: 73 Year
  Sex: Female
  Weight: 47.67 kg

DRUGS (5)
  1. ASPIRIN. [Concomitant]
     Active Substance: ASPIRIN
     Dosage: BEFORE DIALYISIS
  2. VELTASSA [Suspect]
     Active Substance: PATIROMER
     Indication: BLOOD POTASSIUM INCREASED
     Route: 048
     Dates: start: 20191111, end: 20191112
  3. VALIUM [Concomitant]
     Active Substance: DIAZEPAM
     Dosage: BEFORE DIALYISIS
  4. METOPROLOL. [Concomitant]
     Active Substance: METOPROLOL
     Indication: BLOOD PRESSURE MEASUREMENT
  5. RENVELA [Concomitant]
     Active Substance: SEVELAMER CARBONATE

REACTIONS (6)
  - Diarrhoea [Recovering/Resolving]
  - Product dose omission [Unknown]
  - Rash [Recovering/Resolving]
  - Weight decreased [Unknown]
  - Discomfort [Unknown]
  - Poor quality sleep [Unknown]

NARRATIVE: CASE EVENT DATE: 201911
